FAERS Safety Report 15544108 (Version 4)
Quarter: 2019Q1

REPORT INFORMATION
  Report Type: Spontaneous
  Country: US (occurrence: US)
  Receive Date: 20181024
  Receipt Date: 20190103
  Transmission Date: 20190417
  Serious: No
  Sender: FDA-Public Use
  Company Number: US-UNITED THERAPEUTICS-UNT-2018-016794

PATIENT
  Sex: Male
  Weight: 81.63 kg

DRUGS (13)
  1. REMODULIN [Suspect]
     Active Substance: TREPROSTINIL
     Dosage: 0.032 ML/HR
     Route: 058
  2. REMODULIN [Suspect]
     Active Substance: TREPROSTINIL
     Dosage: 0.032 ML/HR
     Route: 058
  3. LETAIRIS [Suspect]
     Active Substance: AMBRISENTAN
     Indication: PRODUCT USED FOR UNKNOWN INDICATION
     Dosage: 10 MG, QD
     Route: 065
     Dates: start: 20150506
  4. LETAIRIS [Suspect]
     Active Substance: AMBRISENTAN
     Dosage: UNK
     Route: 065
  5. REMODULIN [Suspect]
     Active Substance: TREPROSTINIL
     Indication: PULMONARY ARTERIAL HYPERTENSION
     Dosage: 0.0325 ?G/KG, CONTINUING
     Route: 058
     Dates: start: 20180620
  6. REMODULIN [Suspect]
     Active Substance: TREPROSTINIL
     Dosage: 0.056 ?G/KG, CONTINUING
     Route: 058
  7. REMODULIN [Suspect]
     Active Substance: TREPROSTINIL
     Dosage: 0.056 ?G/KG, CONTINUING
     Route: 058
  8. REMODULIN [Suspect]
     Active Substance: TREPROSTINIL
     Dosage: 0.065 ?G/KG, CONTINUING
     Route: 058
  9. REMODULIN [Suspect]
     Active Substance: TREPROSTINIL
     Indication: PULMONARY ARTERIAL HYPERTENSION
     Dosage: 0.0325 ?G/KG, CONTINUING
     Route: 058
     Dates: start: 20180620
  10. REMODULIN [Suspect]
     Active Substance: TREPROSTINIL
     Dosage: 0.065 ?G/KG, CONTINUING
     Route: 058
  11. TADALAFIL. [Concomitant]
     Active Substance: TADALAFIL
     Indication: PRODUCT USED FOR UNKNOWN INDICATION
     Dosage: UNK
     Route: 065
  12. REMODULIN [Suspect]
     Active Substance: TREPROSTINIL
     Dosage: 0.022 ML/HR
     Route: 058
  13. REMODULIN [Suspect]
     Active Substance: TREPROSTINIL
     Dosage: 0.022 ML/HR
     Route: 058

REACTIONS (6)
  - Headache [Unknown]
  - Diarrhoea [Unknown]
  - Fluid retention [Not Recovered/Not Resolved]
  - Insomnia [Unknown]
  - Feeling abnormal [Not Recovered/Not Resolved]
  - Nausea [Unknown]

NARRATIVE: CASE EVENT DATE: 2018
